FAERS Safety Report 5804419-3 (Version None)
Quarter: 2008Q3

REPORT INFORMATION
  Report Type: 
  Country: None (occurrence: None)
  Receive Date: 20080709
  Receipt Date: 20080703
  Transmission Date: 20090109
  Serious: Yes (Other)
  Sender: FDA-Public Use
  Company Number: US-ALLERGAN-0808158US

PATIENT

DRUGS (3)
  1. ACULAR LS [Suspect]
     Indication: DRUG USE FOR UNKNOWN INDICATION
  2. ZYMAR [Suspect]
     Indication: DRUG USE FOR UNKNOWN INDICATION
  3. PRED FORTE [Suspect]
     Indication: DRUG USE FOR UNKNOWN INDICATION

REACTIONS (1)
  - CORNEAL INFILTRATES [None]
